FAERS Safety Report 9633447 (Version 2)
Quarter: 2013Q4

REPORT INFORMATION
  Report Type: Spontaneous
  Country: CH (occurrence: CH)
  Receive Date: 20131021
  Receipt Date: 20131123
  Transmission Date: 20140711
  Serious: Yes (Other)
  Sender: FDA-Public Use
  Company Number: CH-AMGEN-CHESP2013073102

PATIENT
  Age: 85 Year
  Sex: Male
  Weight: 83 kg

DRUGS (6)
  1. XGEVA [Suspect]
     Indication: PROSTATE CANCER
     Dosage: 120 MG, QMO
     Route: 042
     Dates: start: 20120613
  2. ZOLADEX                            /00732101/ [Concomitant]
     Indication: PROSTATE CANCER
     Dosage: 10.8 MG, FOUR TIMES IN A YEAR
     Route: 058
     Dates: start: 200909
  3. CASODEX [Concomitant]
     Indication: PROSTATE CANCER
     Dosage: 50 MG, QD
     Route: 048
     Dates: start: 201309
  4. CLOPIDOGREL [Concomitant]
     Dosage: 75 MG, QD
     Route: 048
  5. PRAVALOTIN [Concomitant]
     Dosage: 40 MG, D
     Route: 048
  6. CALCIMAGON                         /00751501/ [Concomitant]
     Dosage: 500

REACTIONS (1)
  - Osteonecrosis of jaw [Unknown]
